FAERS Safety Report 19854960 (Version 1)
Quarter: 2021Q3

REPORT INFORMATION
  Report Type: Spontaneous
  Country: US (occurrence: US)
  Receive Date: 20210917
  Receipt Date: 20210917
  Transmission Date: 20211014
  Serious: No
  Sender: FDA-Public Use
  Company Number: None

PATIENT
  Age: 69 Year
  Sex: Female

DRUGS (1)
  1. AFINITOR [Suspect]
     Active Substance: EVEROLIMUS
     Route: 048
     Dates: start: 202102

REACTIONS (4)
  - Pulmonary thrombosis [None]
  - Hot flush [None]
  - Thrombosis [None]
  - Night sweats [None]

NARRATIVE: CASE EVENT DATE: 20210721
